FAERS Safety Report 10667270 (Version 3)
Quarter: 2015Q1

REPORT INFORMATION
  Report Type: Report from Study
  Country: US (occurrence: US)
  Receive Date: 20141222
  Receipt Date: 20150209
  Transmission Date: 20150720
  Serious: Yes (Other)
  Sender: FDA-Public Use
  Company Number: US-VERTEX PHARMACEUTICALS-2014-004874

PATIENT
  Age: 22 Year
  Sex: Male
  Weight: 57 kg

DRUGS (26)
  1. VITAMIN D [Concomitant]
     Active Substance: CHOLECALCIFEROL
     Indication: NUTRITIONAL SUPPLEMENTATION
     Dosage: 1000 IU, TID
     Route: 048
     Dates: start: 20080530
  2. VX-770 FDC [Suspect]
     Active Substance: IVACAFTOR
     Indication: CYSTIC FIBROSIS
     Dosage: 250 MG, Q12H
     Route: 048
     Dates: start: 20140226, end: 20141211
  3. VITAMIN D [Concomitant]
     Active Substance: CHOLECALCIFEROL
     Dosage: 5000 IU, 1 PER WEEK
     Route: 048
     Dates: start: 20140221
  4. IBUPROFEN. [Concomitant]
     Active Substance: IBUPROFEN
     Indication: PYREXIA
     Dosage: 540 MG, Q 6HRS PRN
     Dates: start: 20141231
  5. VX-809 FDC [Suspect]
     Active Substance: IVACAFTOR
     Indication: CYSTIC FIBROSIS
     Dosage: 400 MG, Q12H
     Route: 048
     Dates: start: 20130911, end: 20140225
  6. PREDNISONE. [Concomitant]
     Active Substance: PREDNISONE
     Indication: CYSTIC FIBROSIS LUNG
     Dosage: 20 MG, QOD
     Route: 048
     Dates: start: 20041216
  7. MINOCYCLINE [Concomitant]
     Active Substance: MINOCYCLINE\MINOCYCLINE HYDROCHLORIDE
     Indication: CYSTIC FIBROSIS LUNG
     Dosage: 100 MG, BID
     Route: 048
     Dates: start: 20140305
  8. PERIACTIN [Concomitant]
     Active Substance: CYPROHEPTADINE HYDROCHLORIDE
     Indication: DECREASED APPETITE
     Dosage: 4 MG, TID
     Route: 048
     Dates: start: 20141230
  9. HYDROCORTISONE. [Concomitant]
     Active Substance: HYDROCORTISONE
     Indication: SKIN EXFOLIATION
     Dosage: TO PALMS
     Route: 061
  10. SODIUM CHLORIDE. [Concomitant]
     Active Substance: SODIUM CHLORIDE
     Indication: SINUS HEADACHE
     Dosage: 1 SPRAY BID
     Route: 045
     Dates: start: 20150103
  11. VX-809 FDC [Suspect]
     Active Substance: IVACAFTOR
     Indication: CYSTIC FIBROSIS
     Dosage: 400 MG, Q12H
     Route: 048
     Dates: start: 20140226, end: 20141211
  12. PREDNISONE. [Concomitant]
     Active Substance: PREDNISONE
     Dosage: 30 MG, BID
     Route: 048
     Dates: start: 20141230
  13. PULMOZYME [Concomitant]
     Active Substance: DORNASE ALFA
     Indication: CYSTIC FIBROSIS LUNG
     Dosage: 2.5 MG, QD
     Route: 055
     Dates: start: 20041216
  14. AZITHROMYCIN [Concomitant]
     Active Substance: AZITHROMYCIN ANHYDROUS
     Indication: CYSTIC FIBROSIS LUNG
     Dosage: 500 MG, M/W/F
     Route: 048
     Dates: start: 20140305
  15. MEROPENEM. [Concomitant]
     Active Substance: MEROPENEM
     Indication: CYSTIC FIBROSIS LUNG
     Dosage: 2 G, TID
     Route: 042
     Dates: start: 20141230
  16. ZENPEP [Concomitant]
     Active Substance: PANCRELIPASE\PANCRELIPASE AMYLASE\PANCRELIPASE LIPASE\PANCRELIPASE PROTEASE
     Indication: PANCREATIC INSUFFICIENCY
     Dosage: 20000 UNITS TID W/MEALS
     Route: 048
     Dates: start: 20041216
  17. BACTRIM DS [Concomitant]
     Active Substance: SULFAMETHOXAZOLE\TRIMETHOPRIM
     Indication: CYSTIC FIBROSIS LUNG
     Dosage: 800/160 MG QD
     Route: 048
     Dates: start: 20140305
  18. ALBUTEROL. [Concomitant]
     Active Substance: ALBUTEROL
     Dosage: 0.5% (1 ML/5 MG) Q 4HRS PRN
     Route: 055
     Dates: start: 20141231
  19. VITAMIN D3 [Concomitant]
     Active Substance: CHOLECALCIFEROL
     Indication: NUTRITIONAL SUPPLEMENTATION
     Dosage: 3000 IU, QD
     Dates: start: 20141231, end: 20150101
  20. SODIUM CHLORIDE. [Concomitant]
     Active Substance: SODIUM CHLORIDE
     Indication: CYSTIC FIBROSIS LUNG
     Dosage: 4 UNK, UNK
     Route: 055
     Dates: start: 20150101
  21. TOBRAMYCIN. [Concomitant]
     Active Substance: TOBRAMYCIN
     Indication: CYSTIC FIBROSIS LUNG
     Dosage: 40 MG, BID
     Route: 042
     Dates: start: 20141231
  22. VX-770 FDC [Suspect]
     Active Substance: IVACAFTOR
     Indication: CYSTIC FIBROSIS
     Dosage: 250 MG, Q12H
     Route: 048
     Dates: start: 20130911, end: 20140225
  23. OMEPRAZOLE. [Concomitant]
     Active Substance: OMEPRAZOLE
     Indication: GASTROOESOPHAGEAL REFLUX DISEASE
     Dosage: 20 MG, BID
     Route: 048
     Dates: start: 20041216
  24. ADEK [Concomitant]
     Indication: PANCREATIC INSUFFICIENCY
     Dosage: 1 TABLET, QD
     Route: 048
     Dates: start: 20050120
  25. ALBUTEROL. [Concomitant]
     Active Substance: ALBUTEROL
     Dosage: 90 UNK, UNK
     Route: 055
     Dates: start: 20140214
  26. ACTIVASE [Concomitant]
     Active Substance: ALTEPLASE
     Dosage: 1 MG, SINGLE
     Route: 042
     Dates: start: 20150102, end: 20150102

REACTIONS (1)
  - Blood creatine phosphokinase increased [Recovered/Resolved]

NARRATIVE: CASE EVENT DATE: 20141215
